FAERS Safety Report 8237931-0 (Version None)
Quarter: 2012Q1

REPORT INFORMATION
  Report Type: 
  Country: None (occurrence: None)
  Receive Date: 20120327
  Receipt Date: 20120323
  Transmission Date: 20120608
  Serious: Yes (Death)
  Sender: FDA-Public Use
  Company Number: NO-ASTRAZENECA-2012SE19643

PATIENT
  Age: 96 Year
  Sex: Female

DRUGS (7)
  1. METOPROLOL SUCCINATE [Concomitant]
  2. RAMIPRIL [Suspect]
  3. DIGITOXIN TAB [Suspect]
  4. WARFARIN SODIUM [Concomitant]
  5. SEROQUEL [Suspect]
     Route: 048
  6. IMDUR [Concomitant]
  7. BUMETANIDE [Concomitant]

REACTIONS (3)
  - NAUSEA [None]
  - VOMITING [None]
  - DEATH [None]
